FAERS Safety Report 6288974-8 (Version None)
Quarter: 2009Q3

REPORT INFORMATION
  Report Type: 
  Country: None (occurrence: None)
  Receive Date: 20090729
  Receipt Date: 20090723
  Transmission Date: 20100115
  Serious: Yes (Hospitalization)
  Sender: FDA-Public Use
  Company Number: GB-ABBOTT-09P-167-0587011-00

PATIENT
  Age: 52 Year
  Weight: 77.2 kg

DRUGS (7)
  1. HUMIRA [Suspect]
     Indication: RHEUMATOID ARTHRITIS
     Dates: start: 20090331, end: 20090505
  2. AZATHIOPRINE [Concomitant]
     Indication: RHEUMATOID ARTHRITIS
     Dates: start: 20061118, end: 20090331
  3. ETODOLAC [Concomitant]
     Indication: RHEUMATOID ARTHRITIS
     Dosage: LONG STANDING USE
  4. LANSOPRAZOLE [Concomitant]
     Indication: DYSPEPSIA
     Dosage: LONG STANDING USE
  5. REMEDEINE FORTE [Concomitant]
     Indication: RHEUMATOID ARTHRITIS
     Dosage: LONG STANDING USE
  6. CALCICHEW D3 [Concomitant]
     Indication: OSTEOPOROSIS PROPHYLAXIS
     Dosage: LONG STANDING USE
  7. BENDROFLUAZIDE [Concomitant]
     Indication: HYPERTENSION

REACTIONS (1)
  - PANCREATITIS [None]
